FAERS Safety Report 20208868 (Version 1)
Quarter: 2021Q4

REPORT INFORMATION
  Report Type: Spontaneous
  Country: US (occurrence: US)
  Receive Date: 20211220
  Receipt Date: 20211220
  Transmission Date: 20220303
  Serious: No
  Sender: FDA-Public Use
  Company Number: US-MYLANLABS-2021M1091559

PATIENT
  Age: 80 Year
  Sex: Female
  Weight: 86.64 kg

DRUGS (2)
  1. YUPELRI [Suspect]
     Active Substance: REVEFENACIN
     Indication: Lung disorder
     Dosage: 175/3 MICROGRAM PER MILLILITRE, QD
     Route: 045
     Dates: start: 20211205
  2. PREDNISONE [Concomitant]
     Active Substance: PREDNISONE
     Indication: Lung disorder
     Dosage: 30 MILLIGRAM

REACTIONS (3)
  - Lip pain [Unknown]
  - Oral pain [Unknown]
  - Glossodynia [Unknown]

NARRATIVE: CASE EVENT DATE: 20211205
